FAERS Safety Report 24874609 (Version 1)
Quarter: 2025Q1

REPORT INFORMATION
  Report Type: Spontaneous
  Country: US (occurrence: None)
  Receive Date: 20250122
  Receipt Date: 20250122
  Transmission Date: 20250409
  Serious: Yes (Other)
  Sender: FDA-CTU
  Company Number: None

PATIENT
  Age: 67 Year
  Sex: Male
  Weight: 93.6 kg

DRUGS (9)
  1. PROMETHAZINE DM [Suspect]
     Active Substance: DEXTROMETHORPHAN HYDROBROMIDE\PROMETHAZINE HYDROCHLORIDE
     Indication: Cough
     Dosage: FREQUENCY : EVERY 6 HOURS?
     Route: 048
  2. METFORMIN [Concomitant]
     Active Substance: METFORMIN HYDROCHLORIDE
  3. GLIMEPIRIDE [Concomitant]
     Active Substance: GLIMEPIRIDE
  4. TOUJEO [Concomitant]
     Active Substance: INSULIN GLARGINE
  5. clonzapan [Concomitant]
  6. ANASTROZOLE [Concomitant]
     Active Substance: ANASTROZOLE
  7. DUTASTERIDE [Concomitant]
     Active Substance: DUTASTERIDE
  8. DULOXETINE [Concomitant]
     Active Substance: DULOXETINE
  9. BENADRYL [Concomitant]
     Active Substance: DIPHENHYDRAMINE HYDROCHLORIDE

REACTIONS (2)
  - Muscular weakness [None]
  - C-reactive protein increased [None]

NARRATIVE: CASE EVENT DATE: 20250118
